FAERS Safety Report 15466942 (Version 1)
Quarter: 2018Q4

REPORT INFORMATION
  Report Type: Spontaneous
  Country: US (occurrence: US)
  Receive Date: 20181005
  Receipt Date: 20181005
  Transmission Date: 20190204
  Serious: No
  Sender: FDA-Public Use
  Company Number: US-BIOGEN-2018BI00639287

PATIENT
  Sex: Female

DRUGS (1)
  1. AVONEX [Suspect]
     Active Substance: INTERFERON BETA-1A
     Indication: MULTIPLE SCLEROSIS
     Route: 065
     Dates: start: 20180910

REACTIONS (6)
  - Fatigue [Unknown]
  - Back pain [Unknown]
  - Malaise [Unknown]
  - Influenza like illness [Unknown]
  - Nausea [Unknown]
  - Vision blurred [Unknown]
